FAERS Safety Report 18768440 (Version 1)
Quarter: 2021Q1

REPORT INFORMATION
  Report Type: Spontaneous
  Country: US (occurrence: US)
  Receive Date: 20210121
  Receipt Date: 20210121
  Transmission Date: 20210419
  Serious: No
  Sender: FDA-Public Use
  Company Number: None

PATIENT
  Age: 61 Year
  Sex: Female
  Weight: 68.49 kg

DRUGS (10)
  1. IMODIUM [Concomitant]
     Active Substance: LOPERAMIDE HYDROCHLORIDE
  2. CLARITIN [Concomitant]
     Active Substance: LORATADINE
  3. MULTIVITAMIN [Concomitant]
     Active Substance: VITAMINS
  4. CAPECITABINE. [Suspect]
     Active Substance: CAPECITABINE
     Indication: BREAST CANCER
     Route: 048
     Dates: start: 20200724, end: 20210121
  5. NASALCROM [Concomitant]
     Active Substance: CROMOLYN SODIUM
  6. HYDROCODONE?ACETAMINOPHEN [Concomitant]
     Active Substance: ACETAMINOPHEN\HYDROCODONE
  7. DEXAMETHASONE. [Concomitant]
     Active Substance: DEXAMETHASONE
  8. MELOXICAM. [Concomitant]
     Active Substance: MELOXICAM
  9. MEMANTINE. [Concomitant]
     Active Substance: MEMANTINE
  10. ZOLOFT [Concomitant]
     Active Substance: SERTRALINE HYDROCHLORIDE

REACTIONS (1)
  - Disease progression [None]

NARRATIVE: CASE EVENT DATE: 20210121
